FAERS Safety Report 16202396 (Version 1)
Quarter: 2019Q2

REPORT INFORMATION
  Report Type: Spontaneous
  Country: US (occurrence: US)
  Receive Date: 20190416
  Receipt Date: 20190416
  Transmission Date: 20190711
  Serious: No
  Sender: FDA-Public Use
  Company Number: US-SUNOVION-2019SUN001395

PATIENT
  Age: 38 Year
  Sex: Male
  Weight: 95.24 kg

DRUGS (2)
  1. LATUDA [Suspect]
     Active Substance: LURASIDONE HYDROCHLORIDE
     Indication: BIPOLAR I DISORDER
     Dosage: LOWEST DOSE, TITRATED UP TO 120 MG OVER SIX MONTHS
     Route: 048
  2. LATUDA [Suspect]
     Active Substance: LURASIDONE HYDROCHLORIDE
     Dosage: 120 MG, QD
     Route: 048

REACTIONS (6)
  - Hypermetabolism [Recovered/Resolved]
  - Drug ineffective [Recovered/Resolved]
  - Euphoric mood [Recovered/Resolved]
  - Mania [Recovered/Resolved]
  - Tachyphrenia [Recovered/Resolved]
  - Bipolar I disorder [Recovered/Resolved]

NARRATIVE: CASE EVENT DATE: 20190404
